FAERS Safety Report 19157229 (Version 1)
Quarter: 2021Q2

REPORT INFORMATION
  Report Type: Spontaneous
  Country: US (occurrence: US)
  Receive Date: 20210419
  Receipt Date: 20210419
  Transmission Date: 20210717
  Serious: Yes (Death)
  Sender: FDA-Public Use
  Company Number: None

PATIENT
  Sex: Female

DRUGS (1)
  1. BOTOX [Suspect]
     Active Substance: ONABOTULINUMTOXINA
     Indication: DYSTONIA
     Dosage: OTHER DOSE:300 UNITS;OTHER FREQUENCY:Q90D;OTHER ROUTE: IM?PHYSICIANS OFFICE?
     Route: 030
     Dates: start: 20191010, end: 20210225

REACTIONS (1)
  - Death [None]
